FAERS Safety Report 20743604 (Version 5)
Quarter: 2022Q2

REPORT INFORMATION
  Report Type: Report from Study
  Country: US (occurrence: US)
  Receive Date: 20220425
  Receipt Date: 20220603
  Transmission Date: 20220720
  Serious: Yes (Other)
  Sender: FDA-Public Use
  Company Number: US-NOVARTISTESTPH-NVSC2022US093059

PATIENT
  Sex: Male

DRUGS (2)
  1. ENTRESTO [Suspect]
     Active Substance: SACUBITRIL\VALSARTAN
     Indication: Product used for unknown indication
     Dosage: 1 DOSAGE FORM, BID
     Route: 065
  2. ENTRESTO [Suspect]
     Active Substance: SACUBITRIL\VALSARTAN
     Dosage: 50 MG, BID (24.26 MG)
     Route: 065

REACTIONS (5)
  - Cellulitis [Unknown]
  - Ill-defined disorder [Recovered/Resolved]
  - Abdominal distension [Unknown]
  - Peripheral swelling [Unknown]
  - Cough [Recovered/Resolved]
